FAERS Safety Report 17036280 (Version 1)
Quarter: 2019Q4

REPORT INFORMATION
  Report Type: Spontaneous
  Country: US (occurrence: US)
  Receive Date: 20191114
  Receipt Date: 20191114
  Transmission Date: 20200122
  Serious: No
  Sender: FDA-Public Use
  Company Number: None

PATIENT
  Sex: Female

DRUGS (1)
  1. ISOSORBIDE MONONITRATE 30MG [Suspect]
     Active Substance: ISOSORBIDE MONONITRATE

REACTIONS (5)
  - Headache [None]
  - Nausea [None]
  - Hot flush [None]
  - Vomiting [None]
  - Feeling hot [None]
